FAERS Safety Report 19941791 (Version 1)
Quarter: 2021Q4

REPORT INFORMATION
  Report Type: Spontaneous
  Country: US (occurrence: US)
  Receive Date: 20211008
  Receipt Date: 20211008
  Transmission Date: 20220303
  Serious: Yes (Other)
  Sender: FDA-Public Use
  Company Number: None

PATIENT
  Age: 74 Year
  Sex: Male
  Weight: 77 kg

DRUGS (1)
  1. CASIRIVIMAB\IMDEVIMAB [Suspect]
     Active Substance: CASIRIVIMAB\IMDEVIMAB
     Indication: COVID-19
     Dates: start: 20211006

REACTIONS (8)
  - Wheezing [None]
  - Tachypnoea [None]
  - Wheezing [None]
  - Wheezing [None]
  - Pyrexia [None]
  - Hypoxia [None]
  - Hypersensitivity [None]
  - COVID-19 pneumonia [None]

NARRATIVE: CASE EVENT DATE: 20211007
